FAERS Safety Report 9222825 (Version 1)
Quarter: 2013Q2

REPORT INFORMATION
  Report Type: Spontaneous
  Country: GB (occurrence: GB)
  Receive Date: 20130410
  Receipt Date: 20130410
  Transmission Date: 20140414
  Serious: Yes (Hospitalization, Other)
  Sender: FDA-Public Use
  Company Number: GB-PFIZER INC-2013109352

PATIENT
  Age: 87 Year
  Sex: Male

DRUGS (1)
  1. PHENYTOIN [Suspect]
     Indication: EPILEPSY
     Dosage: UNK

REACTIONS (6)
  - Toxicity to various agents [Unknown]
  - Cerebellar syndrome [Recovering/Resolving]
  - Confusional state [Recovered/Resolved]
  - Dysphagia [Recovering/Resolving]
  - Diplopia [Recovering/Resolving]
  - General physical health deterioration [Recovering/Resolving]
